FAERS Safety Report 6835938-9 (Version None)
Quarter: 2010Q3

REPORT INFORMATION
  Report Type: 
  Country: None (occurrence: None)
  Receive Date: 20100713
  Receipt Date: 20100707
  Transmission Date: 20110219
  Serious: Yes (Hospitalization)
  Sender: FDA-Public Use
  Company Number: A0816321A

PATIENT
  Age: 53 Year
  Sex: Male

DRUGS (1)
  1. AVANDIA [Suspect]
     Route: 048
     Dates: start: 20010401, end: 20050901

REACTIONS (5)
  - CARDIAC DISORDER [None]
  - CARDIAC FAILURE CONGESTIVE [None]
  - ISCHAEMIA [None]
  - MYOCARDIAL INFARCTION [None]
  - VENTRICULAR DYSFUNCTION [None]
